FAERS Safety Report 6959580-4 (Version None)
Quarter: 2010Q3

REPORT INFORMATION
  Report Type: 
  Country: None (occurrence: None)
  Receive Date: 20100830
  Receipt Date: 20100830
  Transmission Date: 20110219
  Serious: Yes (Other)
  Sender: FDA-Public Use
  Company Number: 1022556-2010-00053

PATIENT
  Age: 31 Year
  Sex: Female

DRUGS (1)
  1. ICY-HOT-GENERIC [Suspect]
     Indication: MYALGIA
     Dosage: TOPICAL, ONCE
     Route: 061

REACTIONS (4)
  - BURNING SENSATION [None]
  - SKIN EXFOLIATION [None]
  - SKIN HYPERPIGMENTATION [None]
  - SKIN HYPOPIGMENTATION [None]
